FAERS Safety Report 6013274-0 (Version None)
Quarter: 2008Q4

REPORT INFORMATION
  Report Type: 
  Country: None (occurrence: None)
  Receive Date: 20081219
  Receipt Date: 20081208
  Transmission Date: 20090506
  Serious: Yes (Other)
  Sender: FDA-Public Use
  Company Number: US-BAXTER-2008BH011269

PATIENT
  Age: 17 Year
  Sex: Male
  Weight: 81 kg

DRUGS (4)
  1. ADVATE [Suspect]
     Indication: FACTOR VIII DEFICIENCY
     Route: 042
  2. ADVATE [Suspect]
  3. ZYRTEC [Concomitant]
     Indication: MULTIPLE ALLERGIES
     Route: 048
  4. MULTI-VITAMINS [Concomitant]
     Indication: VITAMIN SUPPLEMENTATION
     Route: 048

REACTIONS (6)
  - ARTHRALGIA [None]
  - DRUG INEFFECTIVE [None]
  - FALL [None]
  - HAEMORRHAGE [None]
  - JOINT SWELLING [None]
  - LACERATION [None]
